FAERS Safety Report 7960604-6 (Version None)
Quarter: 2011Q4

REPORT INFORMATION
  Report Type: 
  Country: None (occurrence: None)
  Receive Date: 20111206
  Receipt Date: 20111130
  Transmission Date: 20120403
  Serious: Yes (Hospitalization, Disabling, Other)
  Sender: FDA-Public Use
  Company Number: US-MERCK-1106USA03614

PATIENT
  Age: 81 Year
  Sex: Female

DRUGS (2)
  1. FOSAMAX [Suspect]
     Indication: OSTEOPOROSIS
     Route: 048
     Dates: start: 20030915, end: 20080901
  2. ALENDRONATE SODIUM [Suspect]
     Route: 065

REACTIONS (16)
  - SCOLIOSIS [None]
  - HYPERTENSION [None]
  - SYNCOPE [None]
  - RADICULOPATHY [None]
  - RENAL CYST [None]
  - COMPRESSION FRACTURE [None]
  - BURSITIS [None]
  - BLADDER NEOPLASM [None]
  - FEMORAL NECK FRACTURE [None]
  - OSTEOARTHRITIS [None]
  - SPINAL COLUMN STENOSIS [None]
  - CHEST PAIN [None]
  - FALL [None]
  - TOOTH DISORDER [None]
  - FEMUR FRACTURE [None]
  - HYPERTHYROIDISM [None]
